FAERS Safety Report 18714602 (Version 2)
Quarter: 2021Q1

REPORT INFORMATION
  Report Type: Spontaneous
  Country: US (occurrence: US)
  Receive Date: 20210107
  Receipt Date: 20210305
  Transmission Date: 20210419
  Serious: Yes (Hospitalization, Other)
  Sender: FDA-Public Use
  Company Number: US-ELI_LILLY_AND_COMPANY-US202012013552

PATIENT
  Age: 48 Year
  Sex: Female
  Weight: 98.9 kg

DRUGS (7)
  1. REMDESIVIR. [Concomitant]
     Active Substance: REMDESIVIR
     Indication: COVID-19
     Dosage: UNK UNK, UNKNOWN
     Route: 065
     Dates: start: 20201212, end: 20201215
  2. PIPERACILLIN AND TAZOBACTAM [Concomitant]
     Active Substance: PIPERACILLIN SODIUM\TAZOBACTAM SODIUM
     Indication: COVID-19
     Dosage: UNK UNK, UNKNOWN
     Route: 065
     Dates: start: 20001212, end: 20201215
  3. CEFTRIAXONE. [Concomitant]
     Active Substance: CEFTRIAXONE
     Indication: COVID-19
     Dosage: 2 G, DAILY
     Route: 065
     Dates: start: 20201214, end: 20201218
  4. DECADRON [Concomitant]
     Active Substance: DEXAMETHASONE
     Indication: COVID-19
     Dosage: 20 MG, DAILY
     Route: 065
     Dates: start: 20201211, end: 20201215
  5. DECADRON [Concomitant]
     Active Substance: DEXAMETHASONE
     Dosage: 10 MG, DAILY
     Route: 065
     Dates: start: 20201216, end: 20201222
  6. DECADRON [Concomitant]
     Active Substance: DEXAMETHASONE
     Dosage: 6 MG, DAILY
     Route: 065
     Dates: start: 20201223, end: 20201226
  7. BARICITINIB. [Suspect]
     Active Substance: BARICITINIB
     Indication: COVID-19
     Dosage: 4 MG, DAILY
     Route: 048
     Dates: start: 20201212, end: 20201215

REACTIONS (1)
  - Pneumococcal infection [Recovering/Resolving]

NARRATIVE: CASE EVENT DATE: 20201215
